FAERS Safety Report 26088547 (Version 1)
Quarter: 2025Q4

REPORT INFORMATION
  Report Type: Report from Study
  Country: CA (occurrence: CA)
  Receive Date: 20251125
  Receipt Date: 20251125
  Transmission Date: 20260118
  Serious: Yes (Other)
  Sender: TAKEDA
  Company Number: CA-TAKEDA-2022TUS056338

PATIENT
  Age: 49 Year
  Sex: Male

DRUGS (3)
  1. VEDOLIZUMAB [Suspect]
     Active Substance: VEDOLIZUMAB
     Indication: Crohn^s disease
     Dosage: 300 MILLIGRAM
  2. VEDOLIZUMAB [Suspect]
     Active Substance: VEDOLIZUMAB
     Indication: Crohn^s disease
     Dosage: 108 MILLIGRAM, Q2WEEKS
     Dates: start: 20221116
  3. PREDNISONE [Concomitant]
     Active Substance: PREDNISONE
     Dosage: UNK

REACTIONS (9)
  - Stomal hernia [Unknown]
  - Hallucination [Unknown]
  - Gastroenteritis viral [Unknown]
  - Abdominal pain upper [Unknown]
  - Diarrhoea [Unknown]
  - Gastrointestinal stoma output increased [Unknown]
  - Malaise [Unknown]
  - Therapeutic reaction time decreased [Unknown]
  - Nausea [Unknown]

NARRATIVE: CASE EVENT DATE: 20220811
